FAERS Safety Report 15467134 (Version 1)
Quarter: 2018Q4

REPORT INFORMATION
  Report Type: Report from Study
  Country: None (occurrence: DO)
  Receive Date: 20181005
  Receipt Date: 20181005
  Transmission Date: 20190204
  Serious: Yes (Hospitalization)
  Sender: FDA-Public Use
  Company Number: DO-ABBVIE-18K-279-2510068-00

PATIENT
  Age: 18 Year
  Sex: Male

DRUGS (1)
  1. HUMIRA [Suspect]
     Active Substance: ADALIMUMAB
     Indication: CROHN^S DISEASE
     Route: 058
     Dates: start: 20160720, end: 20180829

REACTIONS (5)
  - Inflammation [Recovering/Resolving]
  - Diarrhoea haemorrhagic [Recovering/Resolving]
  - Antibody test abnormal [Recovering/Resolving]
  - Abdominal pain [Recovering/Resolving]
  - Anal fistula [Recovering/Resolving]

NARRATIVE: CASE EVENT DATE: 20180925
